FAERS Safety Report 5243560-3 (Version None)
Quarter: 2007Q1

REPORT INFORMATION
  Report Type: 
  Country: None (occurrence: None)
  Receive Date: 20070222
  Receipt Date: 20070209
  Transmission Date: 20070707
  Serious: Yes (Other)
  Sender: FDA-Public Use
  Company Number: PHBS2006JP18131

PATIENT
  Age: 35 Year
  Sex: Male
  Weight: 86 kg

DRUGS (4)
  1. LOCHOL [Suspect]
     Indication: HYPERCHOLESTEROLAEMIA
     Dosage: 20 MG/DAY
     Route: 048
     Dates: start: 20051013, end: 20061001
  2. EPL [Suspect]
     Indication: HEPATIC STEATOSIS
     Dosage: 1.5 G, UNK
     Route: 048
     Dates: start: 20050915, end: 20061001
  3. ALLOPURINOL [Suspect]
     Indication: HYPERURICAEMIA
     Dosage: 200 MG, UNK
     Route: 048
     Dates: start: 20050915, end: 20061029
  4. BOFU-TSUSHO-SAN [Suspect]
     Indication: OBESITY
     Dosage: 7.5 UNK, UNK
     Route: 048
     Dates: start: 20051110, end: 20061029

REACTIONS (6)
  - ALANINE AMINOTRANSFERASE INCREASED [None]
  - ALDOLASE INCREASED [None]
  - ASPARTATE AMINOTRANSFERASE INCREASED [None]
  - BLOOD CREATINE PHOSPHOKINASE INCREASED [None]
  - BLOOD LACTATE DEHYDROGENASE INCREASED [None]
  - MYOGLOBIN URINE PRESENT [None]
